FAERS Safety Report 7126446-9 (Version None)
Quarter: 2010Q4

REPORT INFORMATION
  Report Type: 
  Country: None (occurrence: None)
  Receive Date: 20101129
  Receipt Date: 20101115
  Transmission Date: 20110411
  Serious: Yes (Hospitalization)
  Sender: FDA-Public Use
  Company Number: US-MYLANLABS-2010S1021260

PATIENT
  Age: 25 Year
  Sex: Female

DRUGS (1)
  1. AMLODIPINE TABLETS 10 MG [Suspect]
     Indication: OVERDOSE
     Dosage: INGESTED 30 TABLETS (10MG)
     Route: 048

REACTIONS (4)
  - HYPOTENSION [None]
  - OVERDOSE [None]
  - SHOCK [None]
  - SINUS TACHYCARDIA [None]
